FAERS Safety Report 23650357 (Version 1)
Quarter: 2024Q1

REPORT INFORMATION
  Report Type: Spontaneous
  Country: US (occurrence: None)
  Receive Date: 20240320
  Receipt Date: 20240320
  Transmission Date: 20240410
  Serious: No
  Sender: FDA-Public Use
  Company Number: US-ROCHE-3454720

PATIENT
  Age: 77 Year
  Sex: Female

DRUGS (4)
  1. VABYSMO [Suspect]
     Active Substance: FARICIMAB\FARICIMAB-SVOA
     Indication: Neovascular age-related macular degeneration
     Dosage: NO
     Route: 050
     Dates: start: 202307
  2. VABYSMO [Suspect]
     Active Substance: FARICIMAB\FARICIMAB-SVOA
     Route: 050
     Dates: start: 20230720
  3. VABYSMO [Suspect]
     Active Substance: FARICIMAB\FARICIMAB-SVOA
     Route: 050
     Dates: start: 20230828
  4. EYLEA [Concomitant]
     Active Substance: AFLIBERCEPT

REACTIONS (6)
  - Vitritis [Unknown]
  - Uveitis [Unknown]
  - Intraocular pressure increased [Unknown]
  - Off label use [Unknown]
  - Vitreous floaters [Unknown]
  - Impaired work ability [Unknown]

NARRATIVE: CASE EVENT DATE: 20231016
